FAERS Safety Report 18655454 (Version 2)
Quarter: 2021Q1

REPORT INFORMATION
  Report Type: Spontaneous
  Country: PL (occurrence: PL)
  Receive Date: 20201223
  Receipt Date: 20210107
  Transmission Date: 20210419
  Serious: No
  Sender: FDA-Public Use
  Company Number: PL-PFIZER INC-2020507084

PATIENT
  Age: 84 Year
  Sex: Male

DRUGS (11)
  1. PERINDOPRIL [Suspect]
     Active Substance: PERINDOPRIL
     Dosage: 2.5 MG, PER DAY
  2. RAMIPRIL. [Suspect]
     Active Substance: RAMIPRIL
     Dosage: 1.25 MG, PER DAY
  3. AMLODIPINE/INDAPAMIDE/PERINDOPRIL [Suspect]
     Active Substance: AMLODIPINE\INDAPAMIDE\PERINDOPRIL
     Dosage: 1 DF (5 MG/1.25 MG/10 MG), PER DAY
  4. INDAPAMIDE. [Suspect]
     Active Substance: INDAPAMIDE
     Dosage: 1.25 MG, PER DAY
  5. ACETYLSALICYLIC ACID [Suspect]
     Active Substance: ASPIRIN
     Dosage: 75 MG, PER DAY
  6. ATORVASTATIN CALCIUM. [Suspect]
     Active Substance: ATORVASTATIN CALCIUM
     Dosage: 40 MG, PER DAY
  7. DOXAZOSIN MESILATE [Suspect]
     Active Substance: DOXAZOSIN MESYLATE
     Dosage: 4 MG, PER DAY
  8. POTASSIUM [Suspect]
     Active Substance: POTASSIUM
     Dosage: 391 MG K + ION, 3X DAY
  9. DOXAZOSIN MESILATE [Suspect]
     Active Substance: DOXAZOSIN MESYLATE
     Dosage: 2 MG, PER DAY
  10. METOPROLOL. [Suspect]
     Active Substance: METOPROLOL
     Dosage: 25 MG, PER DAY
  11. METOPROLOL. [Suspect]
     Active Substance: METOPROLOL
     Dosage: 50 MG, PER DAY

REACTIONS (1)
  - No adverse event [Unknown]
